FAERS Safety Report 6389286-4 (Version None)
Quarter: 2009Q4

REPORT INFORMATION
  Report Type: 
  Country: None (occurrence: None)
  Receive Date: 20091001
  Receipt Date: 20090717
  Transmission Date: 20100525
  Serious: Yes (Hospitalization)
  Sender: FDA-Public Use
  Company Number: 1000007579

PATIENT
  Age: 44 Year
  Sex: Male

DRUGS (9)
  1. BYSTOLIC [Suspect]
     Indication: HYPERTENSION
     Dosage: 5 MG (5 MG, 1 IN 1 D), ORAL : 10 MG (10 MG, 1 IN 1 D), ORAL
     Route: 048
     Dates: start: 20081119, end: 20081218
  2. BYSTOLIC [Suspect]
     Indication: HYPERTENSION
     Dosage: 5 MG (5 MG, 1 IN 1 D), ORAL : 10 MG (10 MG, 1 IN 1 D), ORAL
     Route: 048
     Dates: start: 20081219, end: 20090526
  3. BYSTOLIC [Suspect]
     Indication: HYPERTENSION
     Dosage: 5 MG (5 MG, 1 IN 1 D), ORAL : 10 MG (10 MG, 1 IN 1 D), ORAL
     Route: 048
     Dates: start: 20090528, end: 20090604
  4. BYSTOLIC [Suspect]
     Indication: HYPERTENSION
     Dosage: 10 MG (10 MG, 1 IN 1 D), ORAL
     Route: 048
     Dates: start: 20090605, end: 20090616
  5. METFORMIN HCL [Concomitant]
  6. NEURONTIN [Concomitant]
  7. CYMBALTA [Concomitant]
  8. XANAX [Concomitant]
  9. FENTANYL TRANSDERMAL SYSTEM [Concomitant]

REACTIONS (3)
  - BRADYCARDIA [None]
  - HEADACHE [None]
  - SYNCOPE [None]
